FAERS Safety Report 4478355-1 (Version None)
Quarter: 2004Q4

REPORT INFORMATION
  Report Type: 
  Country: None (occurrence: None)
  Receive Date: 20041013
  Receipt Date: 20040929
  Transmission Date: 20050328
  Serious: Yes (Hospitalization)
  Sender: FDA-Public Use
  Company Number: DE_040914384

PATIENT
  Age: 75 Year
  Sex: Male
  Weight: 78 kg

DRUGS (4)
  1. HUMATROPE [Suspect]
     Indication: BLOOD GROWTH HORMONE
     Dosage: 0.3 MG DAY
     Dates: start: 19960514
  2. LEVOTHYROXINE SODIUM [Concomitant]
  3. HYDROCORTISON [Concomitant]
  4. TESTOVIRON (TESTOSTERONE ENANTATE) [Concomitant]

REACTIONS (2)
  - DISEASE RECURRENCE [None]
  - PITUITARY TUMOUR BENIGN [None]
